FAERS Safety Report 11888058 (Version 2)
Quarter: 2016Q1

REPORT INFORMATION
  Report Type: Spontaneous
  Country: US (occurrence: US)
  Receive Date: 20160105
  Receipt Date: 20160314
  Transmission Date: 20160526
  Serious: Yes (Hospitalization, Other)
  Sender: FDA-Public Use
  Company Number: US-ROCHE-1688892

PATIENT
  Age: 69 Year
  Sex: Male

DRUGS (2)
  1. ESBRIET [Suspect]
     Active Substance: PIRFENIDONE
     Indication: IDIOPATHIC PULMONARY FIBROSIS
     Dosage: 3 CAPSULE 3 TIMES A DAY
     Route: 048
     Dates: start: 20150630
  2. ESBRIET [Suspect]
     Active Substance: PIRFENIDONE
     Route: 048
     Dates: start: 20150701

REACTIONS (4)
  - Dyspnoea [Recovering/Resolving]
  - Drug dose omission [Unknown]
  - Nephrolithiasis [Unknown]
  - Pulmonary fibrosis [Recovered/Resolved]

NARRATIVE: CASE EVENT DATE: 20160211
